FAERS Safety Report 16137183 (Version 2)
Quarter: 2019Q2

REPORT INFORMATION
  Report Type: Report from Study
  Country: GB (occurrence: GB)
  Receive Date: 20190330
  Receipt Date: 20190508
  Transmission Date: 20190711
  Serious: Yes (Hospitalization, Other)
  Sender: FDA-Public Use
  Company Number: PHHY2019GB049992

PATIENT
  Age: 56 Year
  Sex: Male

DRUGS (1)
  1. ERELZI [Suspect]
     Active Substance: ETANERCEPT-SZZS
     Indication: RHEUMATOID ARTHRITIS
     Dosage: 50 MG, QW
     Route: 058
     Dates: start: 20190204

REACTIONS (9)
  - Cerebrovascular accident [Recovering/Resolving]
  - Feeling abnormal [Unknown]
  - Lower respiratory tract infection [Recovered/Resolved]
  - Fatigue [Unknown]
  - Somnolence [Unknown]
  - Hemiplegia [Unknown]
  - Aphasia [Unknown]
  - Skin discolouration [Unknown]
  - Injection site pain [Recovered/Resolved]

NARRATIVE: CASE EVENT DATE: 20190321
